FAERS Safety Report 6021719-5 (Version None)
Quarter: 2008Q4

REPORT INFORMATION
  Report Type: 
  Country: None (occurrence: None)
  Receive Date: 20081229
  Receipt Date: 20081219
  Transmission Date: 20090506
  Serious: Yes (Death)
  Sender: FDA-Public Use
  Company Number: JP-AVENTIS-200813883JP

PATIENT
  Age: 71 Year
  Sex: Male

DRUGS (9)
  1. RILUTEK [Suspect]
     Indication: AMYOTROPHIC LATERAL SCLEROSIS
     Route: 048
     Dates: start: 20070605
  2. RENIVACE [Concomitant]
     Indication: HYPERTENSION
     Dates: start: 20070605, end: 20070925
  3. MUCOSTA [Concomitant]
     Dates: start: 20070625, end: 20070925
  4. MUCODYNE [Concomitant]
     Dates: start: 20070625, end: 20070925
  5. BIOFERMIN [Concomitant]
     Indication: CONSTIPATION
     Dates: start: 20070619, end: 20070625
  6. LOXONIN                            /00890701/ [Concomitant]
     Dates: start: 20070625, end: 20070925
  7. GASTER D [Concomitant]
     Dates: start: 20070625, end: 20070925
  8. MYSLEE [Concomitant]
     Indication: INSOMNIA
     Dates: start: 20070625, end: 20070925
  9. ROHYPNOL [Concomitant]
     Indication: INSOMNIA
     Dates: start: 20070814, end: 20070925

REACTIONS (1)
  - DEATH [None]
